FAERS Safety Report 10258653 (Version 1)
Quarter: 2014Q2

REPORT INFORMATION
  Report Type: Spontaneous
  Country: US (occurrence: None)
  Receive Date: 20140623
  Receipt Date: 20140623
  Transmission Date: 20141212
  Serious: Yes (Other)
  Sender: FDA-Public Use
  Company Number: 001752052A

PATIENT
  Age: 42 Year
  Sex: Female

DRUGS (6)
  1. PROACTIV+ SKIN SMOOTHING EXFOLIATOR [Suspect]
     Indication: ACNE
     Dosage: ONCE DERMAL
     Dates: start: 20140505
  2. PROACTIV+ PORE TARGETING TREATMENT [Suspect]
     Indication: ACNE
     Dosage: ONCE DERMAL
     Dates: start: 20140505
  3. PROACTIV+ COMPLEXION PERFECTING HYDRATOR [Suspect]
     Indication: ACNE
     Dosage: ONCE DERMAL
     Dates: start: 20140505
  4. PROACTIV+ MARK FADING PADS [Suspect]
     Indication: ACNE
     Dosage: ONCE DERMAL
     Dates: start: 20140505
  5. PROACTIV+ SKIN PURIFYING MASK [Suspect]
     Indication: ACNE
     Dosage: ONCE DERMAL
     Dates: start: 20140505
  6. VITACLEAR [Concomitant]

REACTIONS (2)
  - Lip swelling [None]
  - Swelling face [None]
